FAERS Safety Report 5348404-7 (Version None)
Quarter: 2007Q2

REPORT INFORMATION
  Report Type: 
  Country: None (occurrence: None)
  Receive Date: 20070606
  Receipt Date: 20070530
  Transmission Date: 20071010
  Serious: Yes (Hospitalization)
  Sender: FDA-Public Use
  Company Number: FR-PFIZER INC-2006007418

PATIENT
  Age: 85 Year
  Sex: Female

DRUGS (6)
  1. ATARAX [Suspect]
     Indication: ABNORMAL BEHAVIOUR
     Route: 048
  2. POTASSIUM CHLORIDE [Suspect]
     Indication: ELECTROLYTE IMBALANCE
     Dosage: TEXT:6 CAPSULES DAILY
     Route: 048
  3. NORSET [Suspect]
     Indication: ABNORMAL BEHAVIOUR
     Dosage: TEXT:UNKNOWN
     Route: 048
  4. PRAZEPAM [Suspect]
     Indication: ABNORMAL BEHAVIOUR
     Dosage: TEXT:UNKNOWN
     Route: 048
  5. ZOPICLONE [Suspect]
     Indication: SLEEP DISORDER
     Route: 048
  6. AMPHOCIN [Suspect]
     Indication: FUNGAL INFECTION
     Route: 048

REACTIONS (1)
  - DISTURBANCE IN ATTENTION [None]
